FAERS Safety Report 7441420-0 (Version None)
Quarter: 2011Q2

REPORT INFORMATION
  Report Type: 
  Country: None (occurrence: None)
  Receive Date: 20110428
  Receipt Date: 20110414
  Transmission Date: 20111010
  Serious: Yes (Other)
  Sender: FDA-Public Use
  Company Number: SE-JNJFOC-20110301633

PATIENT
  Age: 3 Decade
  Sex: Female

DRUGS (4)
  1. ASACOL [Concomitant]
     Route: 065
  2. IMUREL [Concomitant]
     Route: 065
  3. REMICADE [Suspect]
     Indication: COLITIS ULCERATIVE
     Dosage: 3RD INFUSION
     Route: 042
  4. REMICADE [Suspect]
     Dosage: 1-2 INFUSIONS
     Route: 042

REACTIONS (1)
  - EPISTAXIS [None]
